FAERS Safety Report 25362904 (Version 2)
Quarter: 2025Q3

REPORT INFORMATION
  Report Type: Spontaneous
  Country: BR (occurrence: BR)
  Receive Date: 20250527
  Receipt Date: 20250701
  Transmission Date: 20251020
  Serious: Yes (Other)
  Sender: GLAXOSMITHKLINE
  Company Number: BR-GLAXOSMITHKLINE INC-BR2025AMR061987

PATIENT
  Sex: Male

DRUGS (1)
  1. ANORO ELLIPTA [Suspect]
     Active Substance: UMECLIDINIUM BROMIDE\VILANTEROL TRIFENATATE
     Indication: Chronic obstructive pulmonary disease
     Dosage: UNK, 62.5MCG/25MCG 30D (SHE USES ONE DOSE PER DAY, SOMETIMES TWO IF HER LUNGS ARE CONGESTED)

REACTIONS (3)
  - Pulmonary congestion [Unknown]
  - Inappropriate schedule of product administration [Unknown]
  - Product complaint [Unknown]
